FAERS Safety Report 8180843-1 (Version None)
Quarter: 2012Q1

REPORT INFORMATION
  Report Type: 
  Country: None (occurrence: None)
  Receive Date: 20120301
  Receipt Date: 20120301
  Transmission Date: 20120608
  Serious: Yes (Disabling, Other)
  Sender: FDA-Public Use
  Company Number: None

PATIENT
  Sex: Female
  Weight: 82.5547 kg

DRUGS (2)
  1. QVAR 80 [Suspect]
     Indication: ASTHMA
     Dosage: 80MCG 2 PUFFS 2X/DAY INHALER
     Route: 055
     Dates: start: 20090101, end: 20110101
  2. QVAR 80 [Suspect]
     Indication: CHRONIC OBSTRUCTIVE PULMONARY DISEASE
     Dosage: 80MCG 2 PUFFS 2X/DAY INHALER
     Route: 055
     Dates: start: 20090101, end: 20110101

REACTIONS (17)
  - EAR PAIN [None]
  - COLITIS ULCERATIVE [None]
  - VISUAL IMPAIRMENT [None]
  - PYREXIA [None]
  - LARYNGITIS [None]
  - DIVERTICULITIS [None]
  - ASTHMA [None]
  - POLLAKIURIA [None]
  - HIATUS HERNIA [None]
  - COUGH [None]
  - DYSPHONIA [None]
  - OROPHARYNGEAL PAIN [None]
  - THIRST [None]
  - MUSCULAR WEAKNESS [None]
  - CHRONIC OBSTRUCTIVE PULMONARY DISEASE [None]
  - FIBROMYALGIA [None]
  - FACE OEDEMA [None]
